FAERS Safety Report 8547710-2 (Version None)
Quarter: 2012Q3

REPORT INFORMATION
  Report Type: 
  Country: None (occurrence: None)
  Receive Date: 20120727
  Receipt Date: 20120427
  Transmission Date: 20120928
  Serious: No
  Sender: FDA-Public Use
  Company Number: US-ASTRAZENECA-2012SE27915

PATIENT
  Age: 48 Year
  Sex: Female
  Weight: 65.8 kg

DRUGS (25)
  1. SEROQUEL [Suspect]
     Route: 048
  2. SEROQUEL [Suspect]
     Route: 048
  3. SEROQUEL [Suspect]
     Route: 048
  4. SEROQUEL [Suspect]
     Route: 048
  5. SEROQUEL [Suspect]
     Dosage: 150 MGS TO 200 MGS
     Route: 048
  6. SEROQUEL [Suspect]
     Route: 048
  7. SEROQUEL [Suspect]
     Route: 048
  8. SEROQUEL [Suspect]
     Route: 048
  9. SEROQUEL [Suspect]
     Route: 048
  10. SEROQUEL [Suspect]
     Indication: BIPOLAR I DISORDER
     Dosage: AT BEDTIME
     Route: 048
     Dates: start: 20040101
  11. SEROQUEL [Suspect]
     Dosage: 150 MGS TO 200 MGS
     Route: 048
  12. SEROQUEL [Suspect]
     Route: 048
  13. SEROQUEL [Suspect]
     Indication: SLEEP DISORDER
     Dosage: AT BEDTIME
     Route: 048
     Dates: start: 20040101
  14. SEROQUEL [Suspect]
     Route: 048
  15. SEROQUEL [Suspect]
     Route: 048
  16. SEROQUEL [Suspect]
     Route: 048
  17. SEROQUEL [Suspect]
     Dosage: 150 MGS TO 200 MGS
     Route: 048
  18. SEROQUEL [Suspect]
     Dosage: 150 MGS TO 200 MGS
     Route: 048
  19. SEROQUEL [Suspect]
     Indication: BIPOLAR DISORDER
     Dosage: AT BEDTIME
     Route: 048
     Dates: start: 20040101
  20. SEROQUEL [Suspect]
     Route: 048
  21. SEROQUEL [Suspect]
     Route: 048
  22. SEROQUEL [Suspect]
     Route: 048
  23. LOT OF MEDICATION [Concomitant]
  24. SEROQUEL [Suspect]
     Indication: MOOD ALTERED
     Dosage: AT BEDTIME
     Route: 048
     Dates: start: 20040101
  25. SEROQUEL [Suspect]
     Route: 048

REACTIONS (12)
  - WEIGHT INCREASED [None]
  - DRUG PRESCRIBING ERROR [None]
  - INTENTIONAL DRUG MISUSE [None]
  - RHEUMATOID ARTHRITIS [None]
  - FEELING ABNORMAL [None]
  - MUSCLE SPASMS [None]
  - TREMOR [None]
  - AUTOIMMUNE THYROIDITIS [None]
  - WEIGHT DECREASED [None]
  - INSOMNIA [None]
  - MUSCLE TWITCHING [None]
  - INCREASED APPETITE [None]
